FAERS Safety Report 4504853-8 (Version None)
Quarter: 2004Q4

REPORT INFORMATION
  Report Type: 
  Country: None (occurrence: None)
  Receive Date: 20040928
  Receipt Date: 20040720
  Transmission Date: 20050328
  Serious: No
  Sender: FDA-Public Use
  Company Number: 04P-163-0267556-00

PATIENT
  Age: 42 Year
  Sex: Male
  Weight: 76.2043 kg

DRUGS (4)
  1. HUMIRA [Suspect]
     Indication: JUVENILE ARTHRITIS
     Dosage: 40 MG. 1 IN 2 WK, SUBCUTANEOUS
     Route: 058
     Dates: start: 20040706
  2. SULFASALAZINE [Concomitant]
  3. PREDNISONE [Concomitant]
  4. IBUPROFEN [Concomitant]

REACTIONS (2)
  - MUSCLE STRAIN [None]
  - NODULE ON EXTREMITY [None]
